FAERS Safety Report 4928803-5 (Version None)
Quarter: 2006Q1

REPORT INFORMATION
  Report Type: 
  Country: None (occurrence: None)
  Receive Date: 20060227
  Receipt Date: 20060227
  Transmission Date: 20060701
  Serious: Yes (Hospitalization)
  Sender: FDA-Public Use
  Company Number: None

PATIENT
  Age: 72 Year
  Sex: Male
  Weight: 52.6173 kg

DRUGS (3)
  1. DIVALPROEX SODIUM [Suspect]
     Indication: CONVULSION
     Dosage: 750 MG BID PO
     Route: 048
     Dates: start: 20010408, end: 20060220
  2. OXYCODONE 5 MG [Suspect]
     Indication: BACK PAIN
     Dosage: 5 MG Q8 HRS PRN PO
     Route: 048
     Dates: start: 20060215, end: 20060220
  3. OXYCODONE 5 MG [Suspect]
     Indication: NECK PAIN
     Dosage: 5 MG Q8 HRS PRN PO
     Route: 048
     Dates: start: 20060215, end: 20060220

REACTIONS (17)
  - BACK PAIN [None]
  - BLOOD PRESSURE DIASTOLIC DECREASED [None]
  - BODY TEMPERATURE INCREASED [None]
  - CONTUSION [None]
  - DEPRESSED LEVEL OF CONSCIOUSNESS [None]
  - DRUG LEVEL INCREASED [None]
  - ERYTHEMA [None]
  - GENERAL PHYSICAL HEALTH DETERIORATION [None]
  - INCORRECT DOSE ADMINISTERED [None]
  - INFECTION [None]
  - MENTAL STATUS CHANGES [None]
  - NECK PAIN [None]
  - OEDEMA PERIPHERAL [None]
  - OXYGEN SATURATION DECREASED [None]
  - TACHYCARDIA [None]
  - TENDERNESS [None]
  - WHITE BLOOD CELL COUNT INCREASED [None]
